FAERS Safety Report 7173598-0 (Version None)
Quarter: 2010Q4

REPORT INFORMATION
  Report Type: 
  Country: None (occurrence: None)
  Receive Date: 20101202
  Receipt Date: 20101118
  Transmission Date: 20110411
  Serious: Yes (Hospitalization, Other)
  Sender: FDA-Public Use
  Company Number: GER/UKI/10/0015676

PATIENT
  Age: 36 Year
  Sex: Female
  Weight: 54 kg

DRUGS (20)
  1. SERTRALINE HYDROCHLORIDE [Suspect]
     Indication: PRODUCT USED FOR UNKNOWN INDICATION
  2. LANSOPRAZOLE [Suspect]
     Indication: PRODUCT USED FOR UNKNOWN INDICATION
  3. DIHYDROCODEINE COMPOUND [Suspect]
     Indication: PRODUCT USED FOR UNKNOWN INDICATION
  4. ARIPIPRAZOLE [Suspect]
     Indication: PRODUCT USED FOR UNKNOWN INDICATION
  5. LAMICTAL [Suspect]
     Indication: EPILEPSY
     Dosage: 400 MG, 2 IN 1 D, ORAL
     Route: 048
     Dates: start: 20040101
  6. NORETHISTERONE (NORETHISTERONE) [Suspect]
     Indication: PRODUCT USED FOR UNKNOWN INDICATION
  7. PROPRANOLOL [Suspect]
     Indication: PRODUCT USED FOR UNKNOWN INDICATION
  8. AMOXICILLIN [Concomitant]
  9. BETAMETHASONE [Concomitant]
  10. CHLORAMPHENICOL [Concomitant]
  11. CLOBAZAM (CLOBAZAM) [Concomitant]
  12. CO-AMOXICLAV (AUGMENTIN /00756801/) [Concomitant]
  13. DICLOFENAC SODIUM [Concomitant]
  14. FOLIC ACID [Concomitant]
  15. LACTULOSE [Concomitant]
  16. LIDOCAINE [Concomitant]
  17. MICONAZOLE [Concomitant]
  18. NUTRITIONAL SUPPLEMENT (NUTRITION 6) [Concomitant]
  19. OMEPRAZOLE [Concomitant]
  20. PROCHLORPERAZINE MALEATE [Concomitant]

REACTIONS (6)
  - CHOLESTASIS OF PREGNANCY [None]
  - CONVULSION [None]
  - DRUG EXPOSURE DURING PREGNANCY [None]
  - INDUCED LABOUR [None]
  - PREGNANCY [None]
  - PREMATURE LABOUR [None]
